FAERS Safety Report 24041862 (Version 1)
Quarter: 2024Q3

REPORT INFORMATION
  Report Type: Spontaneous
  Country: US (occurrence: None)
  Receive Date: 20240701
  Receipt Date: 20240701
  Transmission Date: 20241017
  Serious: Yes (unspecified)
  Sender: Public
  Company Number: None

PATIENT
  Age: 19 Year
  Sex: Male
  Weight: 65.25 kg

DRUGS (1)
  1. QELBREE [Suspect]
     Active Substance: VILOXAZINE HYDROCHLORIDE
     Indication: Attention deficit hyperactivity disorder
     Dosage: 1  CAPSULE ORAL
     Route: 048
     Dates: start: 20240625, end: 20240627

REACTIONS (5)
  - Hallucination [None]
  - Feeling abnormal [None]
  - Dysmorphism [None]
  - Fear [None]
  - Mydriasis [None]

NARRATIVE: CASE EVENT DATE: 20240627
